FAERS Safety Report 9001215 (Version 1)
Quarter: 2013Q1

REPORT INFORMATION
  Report Type: Spontaneous
  Country: US (occurrence: None)
  Receive Date: 20130102
  Receipt Date: 20130102
  Transmission Date: 20140127
  Serious: Yes (Hospitalization)
  Sender: FDA-Public Use
  Company Number: None

PATIENT
  Age: 66 Year
  Sex: Male
  Weight: 92.3 kg

DRUGS (2)
  1. BACLOFEN [Suspect]
     Indication: MUSCLE RELAXANT THERAPY
     Route: 048
     Dates: start: 20050204, end: 20121221
  2. TRAZODONE [Suspect]
     Indication: DEPRESSION
     Route: 048
     Dates: start: 20060505, end: 20121221

REACTIONS (1)
  - Mental status changes [None]
